FAERS Safety Report 9286867 (Version 1)
Quarter: 2013Q2

REPORT INFORMATION
  Report Type: Spontaneous
  Country: US (occurrence: US)
  Receive Date: 20130513
  Receipt Date: 20130513
  Transmission Date: 20140414
  Serious: Yes (Other)
  Sender: FDA-Public Use
  Company Number: CHPA2013US007854

PATIENT
  Sex: Male

DRUGS (7)
  1. EXCEDRIN EXTRA STRENGTH [Suspect]
     Indication: MIGRAINE
     Dosage: 4-12 PER DAY, PRN
     Route: 048
  2. EXCEDRIN EXTRA STRENGTH [Suspect]
     Indication: HEADACHE
  3. EXCEDRIN EXTRA STRENGTH [Suspect]
     Indication: ARTHRALGIA
  4. EXCEDRIN PM [Suspect]
     Indication: HEADACHE
     Dosage: 2 DF, PRN
     Route: 048
  5. EXCEDRIN PM [Suspect]
     Indication: INSOMNIA
  6. MOTRIN [Concomitant]
     Indication: HEADACHE
     Dosage: 800 MG, PRN
  7. MOTRIN [Concomitant]
     Indication: MIGRAINE

REACTIONS (5)
  - Cerebral cyst [Not Recovered/Not Resolved]
  - Attention deficit/hyperactivity disorder [Not Recovered/Not Resolved]
  - Memory impairment [Not Recovered/Not Resolved]
  - Abdominal discomfort [Not Recovered/Not Resolved]
  - Wrong technique in drug usage process [Unknown]
